FAERS Safety Report 8460271-1 (Version None)
Quarter: 2012Q2

REPORT INFORMATION
  Report Type: 
  Country: None (occurrence: None)
  Receive Date: 20120622
  Receipt Date: 20120611
  Transmission Date: 20120825
  Serious: Yes (Life-Threatening, Hospitalization, Other)
  Sender: FDA-Public Use
  Company Number: US-ACTELION-A-US2012-63761

PATIENT

DRUGS (18)
  1. LOMOTIL [Concomitant]
  2. REGLAN [Concomitant]
  3. COUMADIN [Concomitant]
  4. AMIODARONE HCL [Concomitant]
  5. CLONIDINE [Concomitant]
  6. ZESTRIL [Concomitant]
  7. PHENERGAN [Concomitant]
  8. VASOTEC [Concomitant]
  9. LOPRESSOR [Concomitant]
  10. TRACLEER [Suspect]
     Indication: PULMONARY ARTERIAL HYPERTENSION
     Dosage: 125 MG, BID
     Route: 048
     Dates: start: 20090702
  11. CALCIUM CHANNEL BLOCKERS [Concomitant]
  12. LEXAPRO [Concomitant]
  13. REVATIO [Concomitant]
  14. NUVIGIL [Concomitant]
  15. OXYGEN [Concomitant]
  16. LASIX [Concomitant]
  17. XARELTO [Concomitant]
  18. TASIGNA [Concomitant]

REACTIONS (17)
  - FALL [None]
  - APHASIA [None]
  - ATRIAL FIBRILLATION [None]
  - CARDIAC PACEMAKER INSERTION [None]
  - BLINDNESS [None]
  - ASTHENIA [None]
  - CARDIOVERSION [None]
  - DYSARTHRIA [None]
  - HAEMOGLOBIN DECREASED [None]
  - ANAEMIA [None]
  - TRANSIENT ISCHAEMIC ATTACK [None]
  - EYE EXCISION [None]
  - VERTIGO [None]
  - SINUS BRADYCARDIA [None]
  - MYOCARDIAL INFARCTION [None]
  - SYNCOPE [None]
  - BALANCE DISORDER [None]
